FAERS Safety Report 24331616 (Version 1)
Quarter: 2024Q3

REPORT INFORMATION
  Report Type: Report from Study
  Country: US (occurrence: US)
  Receive Date: 20240918
  Receipt Date: 20240918
  Transmission Date: 20241016
  Serious: Yes (Hospitalization, Other)
  Sender: ABBVIE
  Company Number: US-ABBVIE-5922671

PATIENT
  Sex: Female

DRUGS (3)
  1. SKYRIZI [Suspect]
     Active Substance: RISANKIZUMAB-RZAA
     Indication: Psoriasis
     Dosage: WEEK 0?STRENGTH: 150MG/ML
     Route: 058
     Dates: start: 20230817, end: 20230817
  2. SKYRIZI [Suspect]
     Active Substance: RISANKIZUMAB-RZAA
     Route: 058
     Dates: start: 20230917, end: 20230917
  3. SKYRIZI [Suspect]
     Active Substance: RISANKIZUMAB-RZAA
     Dosage: STRENGTH: 150MG/ML
     Route: 058

REACTIONS (8)
  - Intestinal resection [Recovering/Resolving]
  - Pulmonary sarcoidosis [Unknown]
  - Thrombosis [Unknown]
  - Arthralgia [Unknown]
  - Neurosarcoidosis [Unknown]
  - Liver sarcoidosis [Unknown]
  - Nephrolithiasis [Unknown]
  - Myalgia [Unknown]
